FAERS Safety Report 7605307-2 (Version None)
Quarter: 2011Q3

REPORT INFORMATION
  Report Type: 
  Country: None (occurrence: None)
  Receive Date: 20110705
  Receipt Date: 20110621
  Transmission Date: 20111222
  Serious: Yes (Life-Threatening, Hospitalization)
  Sender: FDA-Public Use
  Company Number: LTI2011A00165

PATIENT
  Age: 71 Year
  Sex: Male

DRUGS (5)
  1. PRINIVIL [Concomitant]
  2. ISKEDYL (RAUBASINE, DIHYDROERGOCRISTINE MESILATE) [Concomitant]
  3. FENOFIBRATE [Concomitant]
  4. ACTOS [Suspect]
     Indication: TYPE 2 DIABETES MELLITUS
     Dosage: 30 MG (30 MG,1 IN 1 D) ORAL
     Route: 048
     Dates: start: 20090901, end: 20110501
  5. METFORMIN HCL [Concomitant]

REACTIONS (1)
  - BLADDER TRANSITIONAL CELL CARCINOMA [None]
